FAERS Safety Report 5645325-7 (Version None)
Quarter: 2008Q1

REPORT INFORMATION
  Report Type: 
  Country: None (occurrence: None)
  Receive Date: 20080229
  Receipt Date: 20080226
  Transmission Date: 20080703
  Serious: Yes (Disabling)
  Sender: FDA-Public Use
  Company Number: B0503318A

PATIENT
  Age: 92 Year
  Sex: Female
  Weight: 47 kg

DRUGS (5)
  1. VALTREX [Suspect]
     Indication: HERPES ZOSTER
     Route: 048
     Dates: start: 20080107, end: 20080110
  2. LIPITOR [Concomitant]
     Dosage: 10MG PER DAY
     Route: 048
  3. TOWARAT L [Concomitant]
     Dosage: 20MG PER DAY
     Route: 048
  4. NITRODERM [Concomitant]
     Dosage: .3MG PER DAY
     Route: 062
  5. ASPIRIN [Concomitant]
     Dosage: 100MG PER DAY
     Route: 048

REACTIONS (2)
  - PSYCHIATRIC SYMPTOM [None]
  - RENAL DISORDER [None]
